FAERS Safety Report 4583047-4 (Version None)
Quarter: 2005Q1

REPORT INFORMATION
  Report Type: 
  Country: None (occurrence: None)
  Receive Date: 20050125
  Receipt Date: 20041117
  Transmission Date: 20050727
  Serious: No
  Sender: FDA-Public Use
  Company Number: US_0411108495

PATIENT
  Age: 76 Year
  Sex: Female

DRUGS (1)
  1. FORTEO [Suspect]
     Indication: OSTEOPOROSIS
     Dates: start: 20041001

REACTIONS (5)
  - DIFFICULTY IN WALKING [None]
  - DISCOMFORT [None]
  - HEADACHE [None]
  - MUSCLE SPASMS [None]
  - SENSATION OF HEAVINESS [None]
